FAERS Safety Report 6500324-8 (Version None)
Quarter: 2009Q4

REPORT INFORMATION
  Report Type: 
  Country: None (occurrence: None)
  Receive Date: 20091216
  Receipt Date: 20091208
  Transmission Date: 20100525
  Serious: Yes (Other)
  Sender: FDA-Public Use
  Company Number: US-ROCHE-673559

PATIENT
  Sex: Female
  Weight: 57.2 kg

DRUGS (6)
  1. XELODA [Suspect]
     Route: 048
     Dates: start: 20090801, end: 20091207
  2. LORAZEPAM [Concomitant]
  3. POTASSIUM [Concomitant]
  4. REGLAN [Concomitant]
  5. DOXEPIN HCL [Concomitant]
  6. TRIAMTERENE [Concomitant]
     Dosage: DRUG REPORTED: TRIAMANTERENE

REACTIONS (1)
  - MALIGNANT NEOPLASM PROGRESSION [None]
